FAERS Safety Report 7871932-7 (Version None)
Quarter: 2011Q4

REPORT INFORMATION
  Report Type: 
  Country: None (occurrence: None)
  Receive Date: 20111029
  Receipt Date: 20110310
  Transmission Date: 20120403
  Serious: No
  Sender: FDA-Public Use
  Company Number: US-AMGEN-USASP2011013501

PATIENT
  Age: 62 Year
  Sex: Female

DRUGS (2)
  1. ENBREL [Suspect]
     Indication: RHEUMATOID ARTHRITIS
     Dosage: 50 MG, QWK
     Dates: start: 20010901, end: 20110303
  2. ANTIBIOTICS [Suspect]

REACTIONS (6)
  - COUGH [None]
  - INJECTION SITE PAIN [None]
  - LUNG DISORDER [None]
  - FATIGUE [None]
  - CHILLS [None]
  - PAIN [None]
